FAERS Safety Report 4784759-X (Version None)
Quarter: 2005Q3

REPORT INFORMATION
  Report Type: 
  Country: None (occurrence: None)
  Receive Date: 20050930
  Receipt Date: 20050922
  Transmission Date: 20060218
  Serious: Yes (Other)
  Sender: FDA-Public Use
  Company Number: PHBS2005BR14113

PATIENT
  Sex: Female

DRUGS (1)
  1. FEMARA [Suspect]
     Indication: BREAST CANCER STAGE II
     Dosage: 2.5 MG, QD
     Route: 048
     Dates: start: 20050601

REACTIONS (2)
  - ALOPECIA [None]
  - DIABETES MELLITUS INADEQUATE CONTROL [None]
